FAERS Safety Report 16950781 (Version 1)
Quarter: 2019Q4

REPORT INFORMATION
  Report Type: Spontaneous
  Country: US (occurrence: US)
  Receive Date: 20191022
  Receipt Date: 20191022
  Transmission Date: 20200122
  Serious: Yes (Disabling)
  Sender: FDA-Public Use
  Company Number: None

PATIENT
  Age: 55 Year
  Sex: Female
  Weight: 117 kg

DRUGS (7)
  1. LEVOTHYROXINE. [Concomitant]
     Active Substance: LEVOTHYROXINE
  2. VITAMIN D [Concomitant]
     Active Substance: VITAMIN D NOS
  3. SIMVASTATIN. [Suspect]
     Active Substance: SIMVASTATIN
     Indication: PRODUCT DISPENSING ERROR
     Dosage: ?          QUANTITY:1 TABLET(S);?
     Route: 048
     Dates: start: 20190923, end: 20190929
  4. PROBIOTIC [Concomitant]
     Active Substance: PROBIOTICS NOS
  5. LIOTHYRONINE SODIUJ [Concomitant]
  6. MULTI VITAMIN [Concomitant]
     Active Substance: VITAMINS
  7. CLARITIN [Concomitant]
     Active Substance: LORATADINE

REACTIONS (6)
  - Product label on wrong product [None]
  - Fatigue [None]
  - Aphasia [None]
  - Wrong product administered [None]
  - Muscle spasms [None]
  - Diarrhoea [None]

NARRATIVE: CASE EVENT DATE: 20190929
